FAERS Safety Report 12473143 (Version 4)
Quarter: 2016Q4

REPORT INFORMATION
  Report Type: Spontaneous
  Country: US (occurrence: US)
  Receive Date: 20160616
  Receipt Date: 20161013
  Transmission Date: 20170207
  Serious: Yes (Other)
  Sender: FDA-Public Use
  Company Number: US-TAKEDA-2016MPI005352

PATIENT
  Sex: Female

DRUGS (1)
  1. NINLARO [Suspect]
     Active Substance: IXAZOMIB
     Indication: PLASMA CELL MYELOMA
     Dosage: 3 MG, UNK
     Route: 048

REACTIONS (5)
  - Plasma cell myeloma [Unknown]
  - Diarrhoea [Recovering/Resolving]
  - Product packaging issue [Unknown]
  - Feeling abnormal [Recovered/Resolved]
  - Diarrhoea [Unknown]
